FAERS Safety Report 7124009-2 (Version None)
Quarter: 2010Q4

REPORT INFORMATION
  Report Type: 
  Country: None (occurrence: None)
  Receive Date: 20101126
  Receipt Date: 20101117
  Transmission Date: 20110411
  Serious: No
  Sender: FDA-Public Use
  Company Number: US-PFIZER INC-US-WYE-H17366610

PATIENT
  Sex: Female
  Weight: 125 kg

DRUGS (6)
  1. TYGACIL [Suspect]
     Dosage: 50 ML, 2X/DAY
     Route: 042
     Dates: start: 20100904, end: 20100906
  2. OXYBUTYNIN HYDROCHLORIDE [Concomitant]
  3. ZOLOFT [Concomitant]
  4. ZOFRAN [Concomitant]
  5. LOVENOX [Concomitant]
  6. DILAUDID [Concomitant]

REACTIONS (3)
  - INFUSION SITE ERYTHEMA [None]
  - INFUSION SITE EXTRAVASATION [None]
  - INFUSION SITE SWELLING [None]
